FAERS Safety Report 4983029-4 (Version None)
Quarter: 2006Q2

REPORT INFORMATION
  Report Type: 
  Country: None (occurrence: None)
  Receive Date: 20060420
  Receipt Date: 20060410
  Transmission Date: 20061013
  Serious: Yes (Disabling, Other)
  Sender: FDA-Public Use
  Company Number: 2006050313

PATIENT
  Age: 66 Year
  Sex: Female
  Weight: 70.3075 kg

DRUGS (6)
  1. GLUCOTROL XL [Suspect]
     Indication: DIABETES MELLITUS
     Dosage: 10 MG (5 MG, 2 N 1 D), ORAL
     Route: 048
  2. PRILOSEC [Concomitant]
  3. IBUPROFEN [Concomitant]
  4. PRINIVIL (LISIPRINOPRIL) [Concomitant]
  5. XANAX [Concomitant]
  6. CHLORPHENIRAMINE (CHLORPHENIRAMINE) [Concomitant]

REACTIONS (5)
  - BLINDNESS UNILATERAL [None]
  - CAROTID ARTERY OCCLUSION [None]
  - CEREBROVASCULAR ACCIDENT [None]
  - RETINAL DISORDER [None]
  - VISION BLURRED [None]
